FAERS Safety Report 4651054-9 (Version None)
Quarter: 2005Q2

REPORT INFORMATION
  Report Type: 
  Country: None (occurrence: None)
  Receive Date: 20050429
  Receipt Date: 20050419
  Transmission Date: 20051028
  Serious: Yes (Other)
  Sender: FDA-Public Use
  Company Number: 2005062932

PATIENT
  Age: 85 Year
  Sex: Female
  Weight: 77.1115 kg

DRUGS (7)
  1. BEXTRA [Suspect]
     Indication: ARTHRITIS
     Dosage: 10 MG (10 MG, 1 IN 1 D), ORAL
     Route: 048
     Dates: end: 20050101
  2. ACETAMINOPHEN [Concomitant]
  3. FOSINOPRIL SODIUM [Concomitant]
  4. ATENOLOL [Concomitant]
  5. DYAZIDE [Concomitant]
  6. CALCIUM (CALCIUM) [Concomitant]
  7. ESOMEPRAZOLE (ESOMEPRAZOLE) [Concomitant]

REACTIONS (3)
  - DRUG DOSE OMISSION [None]
  - PHOTODERMATOSIS [None]
  - SKIN CANCER [None]
